FAERS Safety Report 8501870 (Version 2)
Quarter: 2012Q4

REPORT INFORMATION
  Report Type: 
  Country: US (occurrence: US)
  Receive Date: 20120410
  Receipt Date: 20120912
  Transmission Date: 20130627
  Serious: Yes (Other)
  Sender: FDA-Public Use
  Company Number: US-BAYER-2012-032857

PATIENT
  Age: 39 Year
  Sex: Female
  Weight: 72.56 kg

DRUGS (11)
  1. YAZ [Suspect]
     Indication: CONTRACEPTION
     Dosage: UNK
     Dates: start: 20090824, end: 201008
  2. PREDNISONE [Concomitant]
     Dosage: 5 mg, daily
  3. METHYLPREDNISOLONE [Concomitant]
     Dosage: 4 mg, dose pack
  4. ZOLPIDEM [Concomitant]
     Dosage: 10 mg, UNK
  5. PHENTERMINE [Concomitant]
     Dosage: 37.5 mg, UNK
  6. ATARAX [Concomitant]
     Dosage: 25 mg, UNK
     Route: 048
  7. DICLOFENAC [Concomitant]
     Dosage: 75 mg, BID
     Route: 048
  8. ROBAXIN [Concomitant]
     Indication: MUSCLE SPASMS
     Dosage: 500 mg,qid prn (interpreted as four times a day as needed)
     Route: 048
  9. ULTRACET [Concomitant]
     Indication: PAIN
     Dosage: 37.5/325mg 1-2 q 6 hrs prn (interpreted as 1-2 every 6 hours as needed)
     Route: 048
  10. ADIPEX [Concomitant]
     Dosage: 37.5 mg,daily
     Route: 048
  11. ZANAFLEX [Concomitant]
     Indication: MUSCLE SPASMS
     Dosage: 4 mg, bid prn
     Route: 048

REACTIONS (4)
  - Deep vein thrombosis [Recovered/Resolved]
  - Injury [None]
  - Pain [None]
  - Venous injury [Recovered/Resolved]
